FAERS Safety Report 13325386 (Version 3)
Quarter: 2017Q1

REPORT INFORMATION
  Report Type: Report from Study
  Country: TW (occurrence: TW)
  Receive Date: 20170310
  Receipt Date: 20170321
  Transmission Date: 20170428
  Serious: Yes (Hospitalization, Other)
  Sender: FDA-Public Use
  Company Number: TW-JNJFOC-20170305341

PATIENT
  Age: 55 Year
  Sex: Female
  Weight: 58 kg

DRUGS (10)
  1. SIMPONI [Suspect]
     Active Substance: GOLIMUMAB
     Indication: RHEUMATOID ARTHRITIS
     Route: 058
     Dates: start: 20160422
  2. HYDROXYCHLOROQUINE SULFATE. [Concomitant]
     Active Substance: HYDROXYCHLOROQUINE SULFATE
     Route: 048
  3. REBAMIPIDE [Concomitant]
     Active Substance: REBAMIPIDE
     Route: 048
  4. FOLIC ACID. [Concomitant]
     Active Substance: FOLIC ACID
     Route: 048
  5. CELECOXIB. [Concomitant]
     Active Substance: CELECOXIB
     Route: 048
  6. METHOTREXATE. [Concomitant]
     Active Substance: METHOTREXATE
     Route: 048
  7. PHYLLOCONTIN [Concomitant]
     Active Substance: AMINOPHYLLINE
     Route: 048
  8. PREDNISOLONE. [Concomitant]
     Active Substance: PREDNISOLONE
     Route: 048
  9. DOBECON [Concomitant]
     Route: 048
  10. MIZOLLEN [Concomitant]
     Active Substance: MIZOLASTINE
     Dosage: EVERY AFTERNOON OR EVENING
     Route: 048

REACTIONS (9)
  - Pleural effusion [Unknown]
  - Weight increased [Unknown]
  - Vision blurred [Unknown]
  - Treatment failure [Unknown]
  - Pneumonia [Unknown]
  - Dry eye [Unknown]
  - Pulmonary tuberculosis [Not Recovered/Not Resolved]
  - Autoimmune disorder [Unknown]
  - Alopecia [Unknown]

NARRATIVE: CASE EVENT DATE: 201702
